FAERS Safety Report 6247233-X (Version None)
Quarter: 2009Q2

REPORT INFORMATION
  Report Type: 
  Country: None (occurrence: None)
  Receive Date: 20090626
  Receipt Date: 20090622
  Transmission Date: 20091009
  Serious: Yes (Death, Hospitalization)
  Sender: FDA-Public Use
  Company Number: PL-PFIZER INC-2006080101

PATIENT
  Age: 26 Year

DRUGS (11)
  1. BLINDED *EFAVIRENZ [Suspect]
     Indication: HIV INFECTION
     Dosage: UNK MG, 1X/DAY
     Route: 048
     Dates: start: 20060124, end: 20060203
  2. BLINDED *NO SUBJECT DRUG [Suspect]
     Indication: HIV INFECTION
     Dosage: UNK MG, 1X/DAY
     Route: 048
     Dates: start: 20060124, end: 20060203
  3. BLINDED *PLACEBO [Suspect]
     Indication: HIV INFECTION
     Dosage: UNK MG, 1X/DAY
     Route: 048
     Dates: start: 20060124, end: 20060203
  4. BLINDED MARAVIROC [Suspect]
     Indication: HIV INFECTION
     Dosage: UNK MG, 1X/DAY
     Route: 048
     Dates: start: 20060124, end: 20060203
  5. ETHAMBUTOL [Suspect]
     Route: 048
     Dates: start: 20060303, end: 20060427
  6. FROMILID [Suspect]
     Route: 048
     Dates: start: 20060303, end: 20060427
  7. COMBIVIR [Concomitant]
     Indication: HIV INFECTION
     Dosage: 600/300 TDD
     Route: 048
     Dates: start: 20060124, end: 20060203
  8. CIPROFLOXACIN [Concomitant]
     Route: 048
     Dates: start: 20060303, end: 20060427
  9. BISEPTOL [Concomitant]
     Route: 048
     Dates: start: 20060117, end: 20060411
  10. HEMOFER F PROLONGATUM [Concomitant]
     Route: 048
     Dates: start: 20051205, end: 20060411
  11. APAP TAB [Concomitant]
     Route: 048
     Dates: start: 20060117, end: 20060208

REACTIONS (3)
  - HEPATITIS TOXIC [None]
  - LYMPHADENOPATHY [None]
  - PNEUMONIA [None]
